FAERS Safety Report 7726613-7 (Version None)
Quarter: 2011Q3

REPORT INFORMATION
  Report Type: 
  Country: None (occurrence: None)
  Receive Date: 20110902
  Receipt Date: 20110822
  Transmission Date: 20111222
  Serious: Yes (Death)
  Sender: FDA-Public Use
  Company Number: US-ELI_LILLY_AND_COMPANY-US201106008417

PATIENT
  Age: 32 Year
  Sex: Female
  Weight: 144.22 kg

DRUGS (7)
  1. LUNESTA [Concomitant]
  2. XANAX [Concomitant]
  3. VERAPAMIL [Concomitant]
  4. LORTAB [Concomitant]
  5. DYAZIDE [Concomitant]
  6. CYMBALTA [Suspect]
     Indication: MAJOR DEPRESSION
     Dosage: 60 MG, EACH EVENING
     Route: 048
     Dates: start: 20090101
  7. PHENERGAN HCL [Concomitant]

REACTIONS (1)
  - CARDIAC ARREST [None]
